FAERS Safety Report 7073149-5 (Version None)
Quarter: 2010Q4

REPORT INFORMATION
  Report Type: 
  Country: None (occurrence: None)
  Receive Date: 20101029
  Receipt Date: 20100503
  Transmission Date: 20110411
  Serious: No
  Sender: FDA-Public Use
  Company Number: A0857706A

PATIENT
  Age: 61 Year
  Sex: Female

DRUGS (6)
  1. ADVAIR DISKUS 100/50 [Suspect]
     Indication: CHRONIC OBSTRUCTIVE PULMONARY DISEASE
     Dosage: 1PUFF TWICE PER DAY
     Route: 055
     Dates: start: 20090301, end: 20100401
  2. ULTRASE MT20 [Concomitant]
  3. PARACETAMOL [Concomitant]
  4. SENOKOT [Concomitant]
  5. ALBUTEROL [Concomitant]
  6. GEMZAR [Concomitant]

REACTIONS (1)
  - ORAL FUNGAL INFECTION [None]
